FAERS Safety Report 24844084 (Version 1)
Quarter: 2025Q1

REPORT INFORMATION
  Report Type: Spontaneous
  Country: US (occurrence: US)
  Receive Date: 20250115
  Receipt Date: 20250115
  Transmission Date: 20250409
  Serious: No
  Sender: SANOFI AVENTIS
  Company Number: US-SANOFI-02362024

PATIENT
  Sex: Male

DRUGS (1)
  1. CAMPATH [Suspect]
     Active Substance: ALEMTUZUMAB

REACTIONS (3)
  - Supraventricular tachycardia [Unknown]
  - Hypertension [Unknown]
  - Pyrexia [Unknown]

NARRATIVE: CASE EVENT DATE: 20130101
